FAERS Safety Report 17786055 (Version 2)
Quarter: 2020Q2

REPORT INFORMATION
  Report Type: Report from Study
  Country: None (occurrence: NL)
  Receive Date: 20200513
  Receipt Date: 20200616
  Transmission Date: 20200714
  Serious: Yes (Hospitalization, Other)
  Sender: FDA-Public Use
  Company Number: NL-ABBVIE-20K-114-3402794-00

PATIENT
  Age: 76 Year
  Sex: Male

DRUGS (3)
  1. EXELON [Concomitant]
     Active Substance: RIVASTIGMINE TARTRATE
     Indication: PRODUCT USED FOR UNKNOWN INDICATION
  2. DUODOPA [Suspect]
     Active Substance: CARBIDOPA\LEVODOPA
     Indication: PARKINSON^S DISEASE
     Dosage: MD 4.3 CD 4.6 ED 4.0
     Route: 050
     Dates: start: 20181120
  3. ROPINIROLE. [Concomitant]
     Active Substance: ROPINIROLE
     Indication: MOOD ALTERED

REACTIONS (2)
  - Anorectal operation [Not Recovered/Not Resolved]
  - Abdominal operation [Unknown]

NARRATIVE: CASE EVENT DATE: 20200511
